FAERS Safety Report 4977407-7 (Version None)
Quarter: 2006Q2

REPORT INFORMATION
  Report Type: 
  Country: None (occurrence: None)
  Receive Date: 20060412
  Receipt Date: 20060407
  Transmission Date: 20061013
  Serious: Yes (Death, Life-Threatening, Hospitalization)
  Sender: FDA-Public Use
  Company Number: HQWYE628004APR06

PATIENT
  Age: 73 Year
  Sex: Male

DRUGS (1)
  1. TIGECYCLINE (TIGECYCLINE, INJECTION) [Suspect]
     Indication: PNEUMONIA
     Dosage: 100MG LOADING DOSE THEN 50 MG EVERY 12 HOURS
     Route: 042
     Dates: start: 20060309, end: 20060317

REACTIONS (2)
  - IDIOPATHIC PULMONARY FIBROSIS [None]
  - LUNG DISORDER [None]
